FAERS Safety Report 9575288 (Version 2)
Quarter: 2013Q4

REPORT INFORMATION
  Report Type: Spontaneous
  Country: US (occurrence: US)
  Receive Date: 20131001
  Receipt Date: 20131010
  Transmission Date: 20140711
  Serious: Yes (Hospitalization)
  Sender: FDA-Public Use
  Company Number: US-B.I. PHARMACEUTICALS,INC./RIDGEFIELD-2013-BI-29812BP

PATIENT
  Sex: Female

DRUGS (1)
  1. ATROVENT INHALATION SOLUTION [Suspect]
     Indication: CHRONIC OBSTRUCTIVE PULMONARY DISEASE
     Dosage: 68 MCG
     Route: 055
     Dates: start: 2005

REACTIONS (6)
  - Hip fracture [Recovered/Resolved]
  - Scoliosis [Recovered/Resolved]
  - Dysphonia [Not Recovered/Not Resolved]
  - Cough [Not Recovered/Not Resolved]
  - Fall [Recovered/Resolved]
  - Product quality issue [Not Recovered/Not Resolved]
